FAERS Safety Report 5158073-7 (Version None)
Quarter: 2006Q4

REPORT INFORMATION
  Report Type: 
  Country: None (occurrence: None)
  Receive Date: 20061113
  Receipt Date: 20061101
  Transmission Date: 20070319
  Serious: Yes (Life-Threatening)
  Sender: FDA-Public Use
  Company Number: 200610348BBE

PATIENT
  Age: 37 Year
  Sex: Male
  Weight: 106.5953 kg

DRUGS (14)
  1. GAMUNEX [Suspect]
     Indication: GUILLAIN-BARRE SYNDROME
     Dosage: SEE IMAGE
     Route: 042
     Dates: start: 20060914
  2. GAMUNEX [Suspect]
     Indication: GUILLAIN-BARRE SYNDROME
     Dosage: SEE IMAGE
     Route: 042
     Dates: start: 20060915
  3. GAMUNEX [Suspect]
  4. GAMUNEX [Suspect]
     Indication: GUILLAIN-BARRE SYNDROME
  5. CEFTRIAXONE [Concomitant]
  6. AMPICILLIN SODIUM [Concomitant]
  7. VANCOMYCIN [Concomitant]
  8. TYLENOL [Concomitant]
  9. GRAVOL TAB [Concomitant]
  10. MAXERAN [Concomitant]
  11. COLACE [Concomitant]
  12. SENOKOT [Concomitant]
  13. CODEINE [Concomitant]
  14. LOVENOX [Concomitant]

REACTIONS (2)
  - FEBRILE NEUTROPENIA [None]
  - MENINGITIS ASEPTIC [None]
